FAERS Safety Report 7866457-9 (Version None)
Quarter: 2011Q4

REPORT INFORMATION
  Report Type: 
  Country: None (occurrence: None)
  Receive Date: 20111028
  Receipt Date: 20110620
  Transmission Date: 20120403
  Serious: No
  Sender: FDA-Public Use
  Company Number: US-GLAXOSMITHKLINE-A0932045A

PATIENT
  Age: 54 Year
  Sex: Female

DRUGS (6)
  1. PRAVASTATIN [Concomitant]
  2. ZANTAC [Concomitant]
  3. ALLEGRA [Concomitant]
  4. ADVAIR DISKUS 100/50 [Suspect]
     Indication: ASTHMA
     Dosage: 1PUFF TWICE PER DAY
     Route: 055
     Dates: start: 20080101
  5. ZYRTEC [Concomitant]
  6. UNKNOWN MEDICATION [Concomitant]

REACTIONS (2)
  - PRODUCT QUALITY ISSUE [None]
  - DYSPNOEA [None]
